FAERS Safety Report 10409297 (Version 1)
Quarter: 2014Q1

REPORT INFORMATION
  Report Type: Spontaneous
  Country: US (occurrence: None)
  Receive Date: 20140131
  Receipt Date: 20140131
  Transmission Date: 20141002
  Serious: Yes (Other)
  Sender: FDA-Public Use
  Company Number: 104383U

PATIENT
  Sex: 0

DRUGS (2)
  1. KEPPRA [Suspect]
  2. CARBATROL [Suspect]

REACTIONS (6)
  - White blood cell count increased [None]
  - Red blood cell count decreased [None]
  - Pharyngitis streptococcal [None]
  - Rash [None]
  - Pyrexia [None]
  - Convulsion [None]
